FAERS Safety Report 13242148 (Version 1)
Quarter: 2017Q1

REPORT INFORMATION
  Report Type: Spontaneous
  Country: US (occurrence: US)
  Receive Date: 20170216
  Receipt Date: 20170216
  Transmission Date: 20170428
  Serious: No
  Sender: FDA-Public Use
  Company Number: US-RELYPSA-RLY2017000148

PATIENT
  Sex: Female

DRUGS (2)
  1. VELTASSA [Suspect]
     Active Substance: PATIROMER
     Indication: PRODUCT USED FOR UNKNOWN INDICATION
     Dosage: 8.4 G, QD
     Route: 065
     Dates: start: 20160819
  2. VELTASSA [Suspect]
     Active Substance: PATIROMER
     Dosage: 8.4 G, BID
     Route: 065

REACTIONS (2)
  - Drug dose omission [Unknown]
  - Blood potassium increased [Unknown]
